FAERS Safety Report 17285188 (Version 2)
Quarter: 2020Q1

REPORT INFORMATION
  Report Type: Spontaneous
  Country: JP (occurrence: JP)
  Receive Date: 20200117
  Receipt Date: 20200206
  Transmission Date: 20200409
  Serious: Yes (Hospitalization)
  Sender: FDA-Public Use
  Company Number: JP-DSJP-DSJ-2020-101438

PATIENT

DRUGS (6)
  1. SODIUM VALPROATE [Concomitant]
     Active Substance: VALPROATE SODIUM
     Indication: DELUSIONAL DISORDER, UNSPECIFIED TYPE
     Dosage: UNK
     Route: 065
  2. REZALTAS COMBINATION TABLETS [Suspect]
     Active Substance: AZELNIDIPINE\OLMESARTAN MEDOXOMIL
     Indication: SUICIDE ATTEMPT
     Dosage: 800MG/640MG/DAY
     Route: 048
  3. CHLORPROMAZINE HYDROCHLORIDE. [Concomitant]
     Active Substance: CHLORPROMAZINE HYDROCHLORIDE
     Indication: DELUSIONAL DISORDER, UNSPECIFIED TYPE
     Dosage: UNK
     Route: 065
  4. OLMETEC OD [Suspect]
     Active Substance: OLMESARTAN MEDOXOMIL
     Indication: SUICIDE ATTEMPT
     Dosage: 800MG/DAY
     Route: 048
  5. CALBLOCK [Suspect]
     Active Substance: AZELNIDIPINE
     Indication: SUICIDE ATTEMPT
     Dosage: 640MG/DAY
     Route: 048
  6. IPRAGLIFLOZIN L-PROLINE [Suspect]
     Active Substance: IPRAGLIFLOZIN L-PROLINE
     Indication: SUICIDE ATTEMPT
     Dosage: 1500MG/DAY
     Route: 048

REACTIONS (3)
  - Prescription drug used without a prescription [Unknown]
  - Overdose [Unknown]
  - Poisoning [Recovering/Resolving]
